FAERS Safety Report 21308316 (Version 1)
Quarter: 2022Q3

REPORT INFORMATION
  Report Type: Spontaneous
  Country: US (occurrence: None)
  Receive Date: 20220908
  Receipt Date: 20220908
  Transmission Date: 20221027
  Serious: No
  Sender: FDA-Public Use
  Company Number: None

PATIENT
  Age: 60 Year
  Sex: Female
  Weight: 70.31 kg

DRUGS (14)
  1. PIQRAY [Suspect]
     Active Substance: ALPELISIB
     Indication: Breast cancer female
     Dosage: FREQUENCY : DAILY;?
     Route: 048
     Dates: start: 202207, end: 202209
  2. ACETAMINOPHEN [Concomitant]
     Active Substance: ACETAMINOPHEN
  3. CALCIUM [Concomitant]
     Active Substance: CALCIUM
  4. MAGNESIUM [Concomitant]
     Active Substance: MAGNESIUM
  5. DENOSUMAB [Concomitant]
     Active Substance: DENOSUMAB
  6. DEXAMETHASONE [Concomitant]
     Active Substance: DEXAMETHASONE
  7. FULVESTRANT [Concomitant]
     Active Substance: FULVESTRANT
  8. HEPARIN [Concomitant]
     Active Substance: HEPARIN SODIUM
  9. MEBENDAZOLE [Concomitant]
     Active Substance: MEBENDAZOLE
  10. NS 0.9 [Concomitant]
  11. ONDANSETRON [Concomitant]
     Active Substance: ONDANSETRON
  12. PERTUZUMAB [Concomitant]
     Active Substance: PERTUZUMAB
  13. TRASTUZUMAB [Concomitant]
     Active Substance: TRASTUZUMAB
  14. VITAMIN D [Concomitant]
     Active Substance: VITAMIN D NOS

REACTIONS (1)
  - Disease progression [None]
